FAERS Safety Report 7939677-2 (Version None)
Quarter: 2011Q4

REPORT INFORMATION
  Report Type: 
  Country: None (occurrence: None)
  Receive Date: 20111125
  Receipt Date: 20111115
  Transmission Date: 20120403
  Serious: Yes (Life-Threatening, Hospitalization, Other)
  Sender: FDA-Public Use
  Company Number: PHHY2011IT93493

PATIENT
  Sex: Female

DRUGS (2)
  1. METFORMIN HYDROCHLORIDE [Suspect]
     Dosage: 60 DF
     Dates: start: 20111023
  2. TEGRETOL [Suspect]

REACTIONS (11)
  - LACTIC ACIDOSIS [None]
  - INTENTIONAL OVERDOSE [None]
  - SHOCK [None]
  - MUSCULOSKELETAL STIFFNESS [None]
  - DRUG ABUSE [None]
  - METABOLIC ACIDOSIS [None]
  - HYPERTONIA [None]
  - INCORRECT DOSE ADMINISTERED [None]
  - HYPOTENSION [None]
  - TOXICITY TO VARIOUS AGENTS [None]
  - HYPOAESTHESIA [None]
